FAERS Safety Report 25364039 (Version 1)
Quarter: 2025Q2

REPORT INFORMATION
  Report Type: Spontaneous
  Country: MX (occurrence: MX)
  Receive Date: 20250527
  Receipt Date: 20250527
  Transmission Date: 20250717
  Serious: Yes (Disabling)
  Sender: RECORDATI
  Company Number: MX-ORPHANEU-2025003682

PATIENT
  Sex: Male
  Weight: 63 kg

DRUGS (5)
  1. CYSTADROPS [Suspect]
     Active Substance: CYSTEAMINE HYDROCHLORIDE
     Indication: Cystinosis
     Route: 047
     Dates: start: 202503, end: 20250517
  2. CYSTADROPS [Suspect]
     Active Substance: CYSTEAMINE HYDROCHLORIDE
     Dosage: 3 TO 4 DROPS, QD
     Route: 047
     Dates: start: 20250518, end: 20250518
  3. CYSTAGON [Suspect]
     Active Substance: CYSTEAMINE BITARTRATE
     Route: 048
     Dates: start: 2007
  4. PREDNISONE [Concomitant]
     Active Substance: PREDNISONE
     Indication: Renal transplant
     Route: 048
     Dates: start: 1976
  5. LEVOTHYROXINE SODIUM [Concomitant]
     Active Substance: LEVOTHYROXINE SODIUM
     Indication: Hypothyroidism
     Route: 048
     Dates: start: 2003

REACTIONS (6)
  - Ulcerative keratitis [Not Recovered/Not Resolved]
  - Inappropriate schedule of product administration [Recovered/Resolved]
  - Incorrect product administration duration [Recovered/Resolved]
  - Product storage error [Recovered/Resolved]
  - Expired product administered [Recovered/Resolved]
  - Off label use [Recovered/Resolved]

NARRATIVE: CASE EVENT DATE: 20070101
